FAERS Safety Report 8464830-1 (Version None)
Quarter: 2012Q2

REPORT INFORMATION
  Report Type: 
  Country: None (occurrence: None)
  Receive Date: 20120626
  Receipt Date: 20120615
  Transmission Date: 20120825
  Serious: Yes (Death, Hospitalization, Other)
  Sender: FDA-Public Use
  Company Number: FI-JNJFOC-20070104839

PATIENT
  Age: 16 Year
  Sex: Male

DRUGS (5)
  1. INFLIXIMAB [Suspect]
     Dates: start: 20020101
  2. AZATHIOPRINE [Concomitant]
     Indication: CROHN'S DISEASE
  3. INFLIXIMAB [Suspect]
     Dates: start: 20010625
  4. INFLIXIMAB [Suspect]
     Dates: start: 20010731
  5. INFLIXIMAB [Suspect]
     Indication: CROHN'S DISEASE
     Dosage: 4 DOSES ON UNSPECIFIED DATES

REACTIONS (10)
  - SEPSIS [None]
  - SEPTIC SHOCK [None]
  - CYTOKINE STORM [None]
  - PNEUMONIA [None]
  - PROGRESSIVE MULTIFOCAL LEUKOENCEPHALOPATHY [None]
  - ACUTE RESPIRATORY DISTRESS SYNDROME [None]
  - DEATH [None]
  - MULTI-ORGAN FAILURE [None]
  - CENTRAL NERVOUS SYSTEM LESION [None]
  - POST PROCEDURAL COMPLICATION [None]
